FAERS Safety Report 8222862-2 (Version None)
Quarter: 2012Q1

REPORT INFORMATION
  Report Type: 
  Country: None (occurrence: None)
  Receive Date: 20120320
  Receipt Date: 20120315
  Transmission Date: 20120608
  Serious: Yes (Life-Threatening, Hospitalization, Other)
  Sender: FDA-Public Use
  Company Number: FR-PFIZER INC-2012067952

PATIENT
  Age: 48 Year
  Sex: Male

DRUGS (5)
  1. EFFEXOR XR [Suspect]
     Indication: DEPRESSION
     Dosage: 37.5 MG, 2X/DAY
     Route: 048
  2. PANTOPRAZOLE SODIUM [Suspect]
     Dosage: 40 MG, 1X/DAY
     Route: 048
  3. PRAZEPAM [Suspect]
     Dosage: 10 MG, 2X/DAY
     Route: 048
  4. TRIMEPRAZINE TARTRATE [Suspect]
     Dosage: 50 GTT, DAILY
     Route: 048
  5. ZOPICLONE [Suspect]
     Dosage: UNK
     Route: 048

REACTIONS (6)
  - HEPATIC FAILURE [None]
  - TACHYCARDIA [None]
  - DISTURBANCE IN ATTENTION [None]
  - CYTOLYTIC HEPATITIS [None]
  - DIARRHOEA [None]
  - CHOLECYSTITIS ACUTE [None]
